FAERS Safety Report 6089641-6 (Version None)
Quarter: 2009Q1

REPORT INFORMATION
  Report Type: 
  Country: None (occurrence: None)
  Receive Date: 20090220
  Receipt Date: 20090220
  Transmission Date: 20090719
  Serious: Yes (Hospitalization)
  Sender: FDA-Public Use
  Company Number: None

PATIENT
  Age: 66 Year
  Sex: Female

DRUGS (1)
  1. COZAAR [Suspect]

REACTIONS (3)
  - ASTHENIA [None]
  - BRADYCARDIA [None]
  - HYPERKALAEMIA [None]
